FAERS Safety Report 8033801-1 (Version None)
Quarter: 2012Q1

REPORT INFORMATION
  Report Type: 
  Country: None (occurrence: None)
  Receive Date: 20120110
  Receipt Date: 20120105
  Transmission Date: 20120608
  Serious: No
  Sender: FDA-Public Use
  Company Number: US-PFIZER INC-2012003883

PATIENT
  Sex: Female
  Weight: 56.689 kg

DRUGS (2)
  1. IBUPROFEN (ADVIL) [Concomitant]
     Dosage: UNK
  2. PRISTIQ [Suspect]
     Indication: DEPRESSION
     Dosage: 25 MG, 1X/DAY
     Route: 048
     Dates: start: 20120104

REACTIONS (3)
  - RESTLESSNESS [None]
  - NAUSEA [None]
  - PALPITATIONS [None]
